FAERS Safety Report 9675806 (Version 2)
Quarter: 2013Q4

REPORT INFORMATION
  Report Type: Spontaneous
  Country: GB (occurrence: GB)
  Receive Date: 20131107
  Receipt Date: 20131119
  Transmission Date: 20140711
  Serious: Yes (Other)
  Sender: FDA-Public Use
  Company Number: GB-BRISTOL-MYERS SQUIBB COMPANY-19711886

PATIENT
  Age: 8 Decade
  Sex: Male

DRUGS (1)
  1. ELIQUIS [Suspect]

REACTIONS (2)
  - Bladder disorder [Unknown]
  - Tooth disorder [Unknown]
